FAERS Safety Report 18293574 (Version 2)
Quarter: 2021Q1

REPORT INFORMATION
  Report Type: Report from Study
  Country: JP (occurrence: JP)
  Receive Date: 20200922
  Receipt Date: 20210223
  Transmission Date: 20210419
  Serious: Yes (Other)
  Sender: FDA-Public Use
  Company Number: JP-CELLTRION INC.-2020JP028026

PATIENT

DRUGS (7)
  1. MESALAZINE [Concomitant]
     Active Substance: MESALAMINE
     Dosage: 3000 MILLIGRAM/DAY
     Route: 048
  2. CT?P13 [Suspect]
     Active Substance: INFLIXIMAB-DYYB
     Indication: CROHN^S DISEASE
     Dosage: 350 MG (PATIENT WEIGHT: 70.5 KG)
     Route: 041
     Dates: start: 20181104, end: 20181104
  3. CT?P13 [Suspect]
     Active Substance: INFLIXIMAB-DYYB
     Dosage: 335 MG (PATIENT WEIGHT: 66.5 KG)
     Route: 041
     Dates: start: 20190624, end: 20190624
  4. CT?P13 [Suspect]
     Active Substance: INFLIXIMAB-DYYB
     Dosage: 330 MG (PATIENT WEIGHT: 65.6 KG)
     Route: 041
     Dates: start: 20191210, end: 20191210
  5. CT?P13 [Suspect]
     Active Substance: INFLIXIMAB-DYYB
     Dosage: 355 MG (PATIENT WEIGHT: 71 KG)
     Route: 041
     Dates: start: 20190303, end: 20190303
  6. CT?P13 [Suspect]
     Active Substance: INFLIXIMAB-DYYB
     Dosage: 325 MG (PATIENT WEIGHT: 65 KG)
     Route: 041
     Dates: start: 20201104, end: 20201104
  7. CT?P13 [Suspect]
     Active Substance: INFLIXIMAB-DYYB
     Dosage: 355 MG (PATEINT WEIGHT: 70.6 KG)
     Route: 041
     Dates: start: 20190106, end: 20190106

REACTIONS (10)
  - Hepatic steatosis [Not Recovered/Not Resolved]
  - Osteonecrosis [Recovered/Resolved]
  - Underdose [Unknown]
  - Overdose [Unknown]
  - Fracture [Unknown]
  - Cough variant asthma [Recovered/Resolved]
  - Off label use [Unknown]
  - Tonsillar ulcer [Recovered/Resolved]
  - Product use issue [Unknown]
  - Pharyngotonsillitis [Recovered/Resolved]

NARRATIVE: CASE EVENT DATE: 20190106
